FAERS Safety Report 16927652 (Version 1)
Quarter: 2019Q4

REPORT INFORMATION
  Report Type: Spontaneous
  Country: ES (occurrence: ES)
  Receive Date: 20191016
  Receipt Date: 20191016
  Transmission Date: 20200122
  Serious: Yes (Death, Hospitalization)
  Sender: FDA-Public Use
  Company Number: ES-BAXTER-2019BAX020293

PATIENT
  Age: 44 Year
  Sex: Female

DRUGS (1)
  1. DOXIL [Suspect]
     Active Substance: DOXORUBICIN HYDROCHLORIDE
     Indication: SYNOVIAL SARCOMA
     Route: 042
     Dates: start: 20190319, end: 20190710

REACTIONS (4)
  - Cardiomyopathy [Fatal]
  - Product use in unapproved indication [Unknown]
  - Cardiogenic shock [Fatal]
  - Off label use [Unknown]

NARRATIVE: CASE EVENT DATE: 20190723
